FAERS Safety Report 4499012-1 (Version None)
Quarter: 2004Q4

REPORT INFORMATION
  Report Type: 
  Country: None (occurrence: None)
  Receive Date: 20041108
  Receipt Date: 20041025
  Transmission Date: 20050328
  Serious: Yes (Other)
  Sender: FDA-Public Use
  Company Number: 2004241691FI

PATIENT
  Age: 44 Year
  Sex: Female

DRUGS (1)
  1. BEXTRA [Suspect]
     Dosage: 40 MG, ORAL
     Route: 048
     Dates: start: 20040917

REACTIONS (2)
  - PHARYNGEAL OEDEMA [None]
  - URTICARIA GENERALISED [None]
